FAERS Safety Report 23620222 (Version 1)
Quarter: 2024Q1

REPORT INFORMATION
  Report Type: Spontaneous
  Country: US (occurrence: US)
  Receive Date: 20240312
  Receipt Date: 20240312
  Transmission Date: 20240409
  Serious: No
  Sender: FDA-Public Use
  Company Number: US-AMGEN-USASP2024049510

PATIENT
  Sex: Female

DRUGS (2)
  1. OTEZLA [Suspect]
     Active Substance: APREMILAST
     Indication: Product used for unknown indication
     Dosage: UNK
     Route: 065
     Dates: start: 202402
  2. ILUMYA [Concomitant]
     Active Substance: TILDRAKIZUMAB-ASMN
     Dosage: UNK

REACTIONS (5)
  - Diarrhoea [Unknown]
  - Menstrual disorder [Not Recovered/Not Resolved]
  - Vomiting [Unknown]
  - Sinus headache [Unknown]
  - Back pain [Unknown]

NARRATIVE: CASE EVENT DATE: 20240101
